FAERS Safety Report 6714444-6 (Version None)
Quarter: 2010Q2

REPORT INFORMATION
  Report Type: 
  Country: None (occurrence: None)
  Receive Date: 20100506
  Receipt Date: 20100423
  Transmission Date: 20101027
  Serious: Yes (Hospitalization)
  Sender: FDA-Public Use
  Company Number: JP-WATSON-2010-05377

PATIENT
  Age: 65 Year
  Sex: Female

DRUGS (3)
  1. METHYLPREDNISOLONE ACETATE [Suspect]
     Indication: DERMATOMYOSITIS
     Dosage: 500 MG, DAILY X 3 DAYS
     Route: 042
  2. PREDNISOLONE [Suspect]
     Indication: DERMATOMYOSITIS
     Dosage: 60 MG, DAILY
     Route: 048
  3. HEPARIN SODIUM [Suspect]
     Indication: DRUG USE FOR UNKNOWN INDICATION
     Dosage: 5000 IU, DAILY
     Route: 042

REACTIONS (4)
  - HAEMATOMA [None]
  - HYPOALBUMINAEMIA [None]
  - PULMONARY OEDEMA [None]
  - SHOCK HAEMORRHAGIC [None]
